FAERS Safety Report 6583864-5 (Version None)
Quarter: 2010Q1

REPORT INFORMATION
  Report Type: 
  Country: None (occurrence: None)
  Receive Date: 20100216
  Receipt Date: 20091124
  Transmission Date: 20100710
  Serious: No
  Sender: FDA-Public Use
  Company Number: US-ABBOTT-09P-163-0611428-00

PATIENT
  Sex: Male
  Weight: 99.88 kg

DRUGS (2)
  1. SIMCOR [Suspect]
     Indication: HIGH DENSITY LIPOPROTEIN DECREASED
     Dates: start: 20090901
  2. EFFEXOR [Concomitant]
     Indication: ANXIETY
     Dosage: 3 OR 4 TIMES A WEEK

REACTIONS (2)
  - BACK PAIN [None]
  - MYALGIA [None]
